FAERS Safety Report 5420431-0 (Version None)
Quarter: 2007Q3

REPORT INFORMATION
  Report Type: 
  Country: None (occurrence: None)
  Receive Date: 20070816
  Receipt Date: 20070807
  Transmission Date: 20080115
  Serious: Yes (Other)
  Sender: FDA-Public Use
  Company Number: US021000

PATIENT
  Sex: Female

DRUGS (1)
  1. FENTORA [Suspect]
     Indication: PAIN
     Dosage: BUCCAL
     Route: 002
     Dates: start: 20070401

REACTIONS (2)
  - LOSS OF CONSCIOUSNESS [None]
  - SKIN DISCOLOURATION [None]
